FAERS Safety Report 5856728-X (Version None)
Quarter: 2008Q3

REPORT INFORMATION
  Report Type: 
  Country: None (occurrence: None)
  Receive Date: 20080821
  Receipt Date: 20080805
  Transmission Date: 20090109
  Serious: Yes (Death, Hospitalization)
  Sender: FDA-Public Use
  Company Number: 2008001097

PATIENT
  Age: 61 Year
  Sex: Female
  Weight: 26.3086 kg

DRUGS (4)
  1. ERLOTINIB (ERLOTINIB) (TABLET) (ERLOTINIB) [Suspect]
     Indication: NON-SMALL CELL LUNG CANCER
     Dosage: (150 MG,QD), ORAL
     Route: 048
     Dates: start: 20080319, end: 20080414
  2. SUNITINIB/ PLACEBO [Suspect]
     Indication: NON-SMALL CELL LUNG CANCER
     Dosage: (37.5 MG,QD), ORAL
     Route: 048
     Dates: start: 20080319, end: 20080414
  3. MTHYLPREDNISOLONE (METHYLPREDNISOLONE) [Concomitant]
  4. FAMOTIDINE [Concomitant]

REACTIONS (3)
  - ANAEMIA [None]
  - MALIGNANT NEOPLASM PROGRESSION [None]
  - NON-SMALL CELL LUNG CANCER [None]
